FAERS Safety Report 5132456-3 (Version None)
Quarter: 2006Q4

REPORT INFORMATION
  Report Type: 
  Country: None (occurrence: None)
  Receive Date: 20061017
  Receipt Date: 20061005
  Transmission Date: 20070319
  Serious: Yes (Other)
  Sender: FDA-Public Use
  Company Number: 2006SP003804

PATIENT
  Age: 29 Year
  Sex: Male

DRUGS (2)
  1. CELESTONE [Suspect]
     Indication: DERMATITIS ALLERGIC
     Dosage: PO
     Route: 048
     Dates: start: 20060918, end: 20060922
  2. ALESION [Concomitant]

REACTIONS (1)
  - RHABDOMYOLYSIS [None]
